FAERS Safety Report 5388375-0 (Version None)
Quarter: 2007Q3

REPORT INFORMATION
  Report Type: 
  Country: None (occurrence: None)
  Receive Date: 20070716
  Receipt Date: 20070703
  Transmission Date: 20080115
  Serious: Yes (Hospitalization)
  Sender: FDA-Public Use
  Company Number: US-ELI_LILLY_AND_COMPANY-US200706003321

PATIENT
  Age: 63 Year
  Sex: Female
  Weight: 87.528 kg

DRUGS (24)
  1. FORTEO [Suspect]
     Indication: OSTEOPOROSIS
     Dosage: 20 UG, DAILY (1/D)
     Dates: start: 20070301, end: 20070401
  2. ANALGESICS [Concomitant]
     Indication: RHEUMATOID ARTHRITIS
  3. ALBUTEROL [Concomitant]
     Dosage: 90 UG, AS NEEDED
     Dates: start: 20070313
  4. CALCITRIOL [Concomitant]
     Dosage: 0.25 UG, 3/W
     Dates: start: 20070422
  5. DETROL [Concomitant]
     Indication: URINARY INCONTINENCE
     Dosage: 2 MG, DAILY (1/D)
     Dates: start: 20070313
  6. FERROUS SULFATE [Concomitant]
     Dosage: 325 MG, 3/D
     Dates: start: 20070405
  7. FLOVENT [Concomitant]
     Dosage: 110 UG, 2/D
     Dates: start: 20070313
  8. MORPHINE [Concomitant]
     Dosage: 15 MG, AS NEEDED
     Dates: start: 20070313
  9. NYSTATIN [Concomitant]
     Dosage: 1000 U, 4/D
     Dates: start: 20070422
  10. ROXANOL [Concomitant]
     Dosage: 20 MG, AS NEEDED
     Dates: start: 20070313
  11. TYLENOL (CAPLET) [Concomitant]
     Dosage: 650 MG, 3/D
     Dates: start: 20070422
  12. LINEZOLID [Concomitant]
  13. ALLOPURINOL [Concomitant]
  14. ASACOL [Concomitant]
  15. ASPIRIN [Concomitant]
  16. GABAPENTIN [Concomitant]
  17. ISORDIL [Concomitant]
  18. LEVOTHYROXINE SODIUM [Concomitant]
  19. LIDODERM [Concomitant]
  20. OMEPRAZOLE [Concomitant]
  21. POTASSIUM CHLORIDE [Concomitant]
  22. SERTRALINE [Concomitant]
  23. SIMVASTATIN [Concomitant]
  24. TOPROL-XL [Concomitant]

REACTIONS (11)
  - ADVERSE DRUG REACTION [None]
  - CARDIAC FAILURE CONGESTIVE [None]
  - FALL [None]
  - HAEMATOMA [None]
  - HEAD INJURY [None]
  - MENTAL STATUS CHANGES [None]
  - NECK INJURY [None]
  - NECK PAIN [None]
  - PULMONARY HYPERTENSION [None]
  - URGE INCONTINENCE [None]
  - URINARY TRACT INFECTION [None]
